FAERS Safety Report 6010452-1 (Version None)
Quarter: 2008Q4

REPORT INFORMATION
  Report Type: 
  Country: None (occurrence: None)
  Receive Date: 20081218
  Receipt Date: 20071227
  Transmission Date: 20090506
  Serious: No
  Sender: FDA-Public Use
  Company Number: US-AMGEN-KDL256636

PATIENT
  Sex: Male

DRUGS (7)
  1. ENBREL [Suspect]
     Indication: PSORIASIS
     Route: 058
     Dates: start: 20070201, end: 20071201
  2. ENBREL [Suspect]
     Indication: DRUG USE FOR UNKNOWN INDICATION
  3. LIPITOR [Concomitant]
  4. PRILOSEC [Concomitant]
  5. TYLENOL (CAPLET) [Concomitant]
  6. ASPIRIN [Concomitant]
  7. UNKNOWN [Concomitant]

REACTIONS (4)
  - AGEUSIA [None]
  - LEUKOPENIA [None]
  - LIP SWELLING [None]
  - TONGUE ULCERATION [None]
